FAERS Safety Report 7650204-X (Version None)
Quarter: 2011Q3

REPORT INFORMATION
  Report Type: 
  Country: None (occurrence: None)
  Receive Date: 20110802
  Receipt Date: 20110719
  Transmission Date: 20111222
  Serious: Yes (Hospitalization)
  Sender: FDA-Public Use
  Company Number: GB-CELGENEUS-167-20785-11072127

PATIENT
  Age: 67 Year
  Sex: Male

DRUGS (3)
  1. THALIDOMIDE [Suspect]
     Dosage: 100 MILLIGRAM
     Route: 048
     Dates: start: 20110620, end: 20110711
  2. DEXAMETHASONE [Suspect]
     Route: 048
     Dates: start: 20110620, end: 20110711
  3. CYCLOPHOSPHAMIDE [Suspect]
     Dosage: 500 MILLIGRAM
     Route: 048
     Dates: start: 20110620, end: 20110711

REACTIONS (3)
  - SEPSIS [None]
  - MONONEUROPATHY MULTIPLEX [None]
  - SUPRAVENTRICULAR TACHYCARDIA [None]
